FAERS Safety Report 5718772-2 (Version None)
Quarter: 2008Q2

REPORT INFORMATION
  Report Type: 
  Country: None (occurrence: None)
  Receive Date: 20080425
  Receipt Date: 20080422
  Transmission Date: 20081010
  Serious: Yes (Life-Threatening, Other)
  Sender: FDA-Public Use
  Company Number: PHBS2007RU10234

PATIENT
  Age: 28 Year
  Sex: Female
  Weight: 62 kg

DRUGS (5)
  1. SANDIMMUNE [Suspect]
     Indication: SYSTEMIC LUPUS ERYTHEMATOSUS
     Dosage: 200 MG/DAY
     Route: 048
     Dates: start: 20070101
  2. PREDNISOLONE [Concomitant]
     Dosage: 30 MG, UNK
     Route: 048
     Dates: start: 19960101
  3. METHYLPREDNISOLONE [Concomitant]
     Indication: SYSTEMIC LUPUS ERYTHEMATOSUS
     Dates: start: 20071101
  4. NORMODIPIN [Concomitant]
     Indication: HYPERTENSION
     Dosage: 10 MG DAILY
     Dates: start: 20070601
  5. CYCLOPHOSPHAMIDE [Concomitant]
     Indication: SYSTEMIC LUPUS ERYTHEMATOSUS
     Route: 042
     Dates: start: 20061001, end: 20070101

REACTIONS (8)
  - CAESAREAN SECTION [None]
  - DRUG EXPOSURE DURING PREGNANCY [None]
  - HYPERTENSION [None]
  - NEPHROTIC SYNDROME [None]
  - OEDEMA [None]
  - PRE-ECLAMPSIA [None]
  - PROTEINURIA [None]
  - SYSTEMIC LUPUS ERYTHEMATOSUS [None]
